FAERS Safety Report 17823181 (Version 1)
Quarter: 2020Q2

REPORT INFORMATION
  Report Type: Spontaneous
  Country: US (occurrence: US)
  Receive Date: 20200525
  Receipt Date: 20200525
  Transmission Date: 20200714
  Serious: Yes (Other)
  Sender: FDA-Public Use
  Company Number: None

PATIENT
  Age: 75 Year
  Sex: Female
  Weight: 82.6 kg

DRUGS (11)
  1. INSULIN LISPRO SUBCUTANEOUS [Concomitant]
     Active Substance: INSULIN LISPRO
     Dates: start: 20200514
  2. TAMOXIFEN 20 MG TABLETS [Concomitant]
     Active Substance: TAMOXIFEN
     Dates: start: 20200515
  3. ENOXAPARIN 40 MG SUBCUTANEOUS [Concomitant]
     Active Substance: ENOXAPARIN
     Dates: start: 20200514
  4. SENNA-DOCUSATE 8.6 MG-50 MG TABLET [Concomitant]
     Active Substance: DOCUSATE SODIUM\SENNOSIDES
     Dates: start: 20200520
  5. ALLOPURINOL 100 MG TABLET [Concomitant]
     Active Substance: ALLOPURINOL
     Dates: start: 20200515
  6. POLYETHYLENE GLYCOL 17 G PACKET [Concomitant]
     Active Substance: POLYETHYLENE GLYCOL 3350
     Dates: start: 20200520
  7. MULTIVITAMIN ORAL TABLET [Concomitant]
     Active Substance: VITAMINS
     Dates: start: 20200520
  8. INSULIN GLARGINE SUBCUTANEOUS [Concomitant]
     Active Substance: INSULIN GLARGINE
     Dates: start: 20200515
  9. REMDESIVIR. [Suspect]
     Active Substance: REMDESIVIR
     Indication: COVID-19
     Dates: start: 20200519, end: 20200522
  10. CARVEDILOL 12.5 MG TABLET [Concomitant]
     Active Substance: CARVEDILOL
     Dates: start: 20200516
  11. FAMOTIDINE 20MG TABLETS [Concomitant]
     Active Substance: FAMOTIDINE
     Dates: start: 20200514

REACTIONS (6)
  - Rash [None]
  - Rash pruritic [None]
  - Infusion related reaction [None]
  - Respiratory distress [None]
  - Wheezing [None]
  - Hypopnoea [None]

NARRATIVE: CASE EVENT DATE: 20200522
